FAERS Safety Report 9980673 (Version 3)
Quarter: 2014Q2

REPORT INFORMATION
  Report Type: Report from Study
  Country: DE (occurrence: DE)
  Receive Date: 20140307
  Receipt Date: 20140630
  Transmission Date: 20141212
  Serious: Yes (Hospitalization)
  Sender: FDA-Public Use
  Company Number: DE-ROCHE-1336528

PATIENT
  Age: 56 Year
  Sex: Male
  Weight: 86 kg

DRUGS (12)
  1. BEVACIZUMAB [Suspect]
     Indication: NON-SMALL CELL LUNG CANCER
     Dosage: DATE OF LAST DOSE PRIOR TO SAE 27/DEC/2013
     Route: 042
     Dates: start: 20130930
  2. RAMIPRIL [Concomitant]
     Indication: HYPERTENSION
     Route: 048
  3. RAMIPRIL [Concomitant]
     Route: 048
  4. AMLODIPIN [Concomitant]
     Indication: HYPERTENSION
     Route: 048
  5. LEVOTHYROXINE [Concomitant]
     Indication: HYPOTHYROIDISM
     Route: 048
  6. LEVOTHYROXINE [Concomitant]
     Route: 065
  7. CARBAMAZEPINE [Concomitant]
     Indication: MANIA
     Route: 048
  8. ASS [Concomitant]
     Indication: TRANSIENT ISCHAEMIC ATTACK
     Route: 048
  9. METAMIZOL [Concomitant]
     Indication: PAIN
     Route: 048
  10. DEKRISTOL [Concomitant]
     Indication: PROPHYLAXIS
     Route: 048
  11. ZOPICLON [Concomitant]
     Indication: SLEEP DISORDER
     Dosage: AS REQUIRED
     Route: 048
  12. ATORVASTATIN [Concomitant]
     Indication: HYPERLIPIDAEMIA
     Route: 048

REACTIONS (3)
  - Dyspnoea [Unknown]
  - Asthenia [Unknown]
  - Syncope [Unknown]
